FAERS Safety Report 13402639 (Version 1)
Quarter: 2017Q2

REPORT INFORMATION
  Report Type: Report from Study
  Country: US (occurrence: US)
  Receive Date: 20170404
  Receipt Date: 20170404
  Transmission Date: 20170830
  Serious: Yes (Hospitalization)
  Sender: FDA-Public Use
  Company Number: US-ACTELION-A-NJ2017-151804

PATIENT
  Age: 70 Year
  Sex: Male

DRUGS (12)
  1. SILDENAFIL. [Concomitant]
     Active Substance: SILDENAFIL
  2. SPIRONOLACTONE. [Concomitant]
     Active Substance: SPIRONOLACTONE
  3. NEXIUM [Concomitant]
     Active Substance: ESOMEPRAZOLE MAGNESIUM
  4. INDOMETHACIN. [Concomitant]
     Active Substance: INDOMETHACIN
  5. TOPROL XL [Concomitant]
     Active Substance: METOPROLOL SUCCINATE
  6. LASIX [Concomitant]
     Active Substance: FUROSEMIDE
  7. POTASSIUM [Concomitant]
     Active Substance: POTASSIUM
  8. OPSUMIT [Suspect]
     Active Substance: MACITENTAN
     Indication: PULMONARY ARTERIAL HYPERTENSION
     Dosage: 10 MG, BID
     Route: 048
     Dates: start: 20150116
  9. TYVASO [Concomitant]
     Active Substance: TREPROSTINIL
  10. ALLOPURINOL. [Concomitant]
     Active Substance: ALLOPURINOL
  11. FLOMAX [Concomitant]
     Active Substance: TAMSULOSIN HYDROCHLORIDE
  12. FLUTICASONE PROPIONATE. [Concomitant]
     Active Substance: FLUTICASONE PROPIONATE

REACTIONS (1)
  - Leukaemia [Recovered/Resolved]
